FAERS Safety Report 8819530 (Version 1)
Quarter: 2012Q4

REPORT INFORMATION
  Report Type: 
  Country: KR (occurrence: KR)
  Receive Date: 20120930
  Receipt Date: 20120930
  Transmission Date: 20130627
  Serious: Yes (Other)
  Sender: FDA-Public Use
  Company Number: KR-MYLANLABS-2012S1019455

PATIENT
  Age: 54 Year
  Sex: Male

DRUGS (4)
  1. CARBAMAZEPINE [Suspect]
     Indication: NEUROPATHY PERIPHERAL
     Route: 065
  2. CILOSTAZOL [Suspect]
     Indication: ANTIPLATELET THERAPY
     Route: 065
  3. ASPIRIN [Concomitant]
     Indication: ANTIPLATELET THERAPY
     Route: 065
  4. CLOPIDOGREL [Concomitant]
     Indication: ANTIPLATELET THERAPY
     Route: 065

REACTIONS (2)
  - Drug reaction with eosinophilia and systemic symptoms [Recovered/Resolved]
  - Drug reaction with eosinophilia and systemic symptoms [Recovered/Resolved]
